FAERS Safety Report 6332593-1 (Version None)
Quarter: 2009Q3

REPORT INFORMATION
  Report Type: 
  Country: None (occurrence: None)
  Receive Date: 20090828
  Receipt Date: 20090821
  Transmission Date: 20100115
  Serious: Yes (Death, Life-Threatening, Hospitalization)
  Sender: FDA-Public Use
  Company Number: JP-ROCHE-602324

PATIENT
  Sex: Male
  Weight: 69.8 kg

DRUGS (4)
  1. NAPROXEN [Suspect]
     Indication: DRUG USE FOR UNKNOWN INDICATION
     Dosage: DRUG: NAIXAN. FORM: ORAL FORMULATION (NOT OTHERWISE SPECIFIED).
     Route: 048
     Dates: start: 20081128, end: 20081208
  2. ERLOTINIB [Suspect]
     Indication: LUNG ADENOCARCINOMA
     Route: 048
     Dates: start: 20081203, end: 20090223
  3. OMEPRAL [Concomitant]
     Dosage: DOSE FORM: ENTERIC
     Route: 048
     Dates: start: 20081203
  4. SODIUM ALGINATE [Concomitant]
     Dosage: DRUG REPORTED AS ARCRANE
     Route: 048
     Dates: start: 20081209, end: 20081218

REACTIONS (4)
  - DISEASE PROGRESSION [None]
  - GASTRIC HAEMORRHAGE [None]
  - GASTRIC ULCER [None]
  - RASH [None]
